FAERS Safety Report 17081829 (Version 1)
Quarter: 2019Q4

REPORT INFORMATION
  Report Type: Spontaneous
  Country: US (occurrence: US)
  Receive Date: 20191030
  Receipt Date: 20191030
  Transmission Date: 20200122
  Serious: Yes (Other)
  Sender: FDA-Public Use
  Company Number: None

PATIENT
  Age: 57 Year
  Sex: Male

DRUGS (4)
  1. JARDIANCE [Concomitant]
     Active Substance: EMPAGLIFLOZIN
  2. ENBREL [Suspect]
     Active Substance: ETANERCEPT
     Indication: PSORIASIS
     Route: 058
     Dates: start: 201902
  3. GLIPIZIDE. [Concomitant]
     Active Substance: GLIPIZIDE
  4. METFORMIN [Concomitant]
     Active Substance: METFORMIN HYDROCHLORIDE

REACTIONS (3)
  - Psoriasis [None]
  - Therapy cessation [None]
  - Bladder cancer [None]

NARRATIVE: CASE EVENT DATE: 201906
